FAERS Safety Report 18967397 (Version 3)
Quarter: 2021Q3

REPORT INFORMATION
  Report Type: Report from Study
  Country: US (occurrence: US)
  Receive Date: 20210303
  Receipt Date: 20210830
  Transmission Date: 20211014
  Serious: Yes (Hospitalization)
  Sender: FDA-Public Use
  Company Number: US-SEATTLE GENETICS-2020SGN05121

PATIENT
  Age: 68 Year
  Sex: Female

DRUGS (12)
  1. TUCATINIB [Suspect]
     Active Substance: TUCATINIB
     Indication: BREAST CANCER METASTATIC
     Dosage: 50 MG, UNK
     Dates: start: 20201116
  2. MIRTAZAPINE. [Concomitant]
     Active Substance: MIRTAZAPINE
  3. TORSEMIDE. [Concomitant]
     Active Substance: TORSEMIDE
  4. SPIRONOLACTONE. [Concomitant]
     Active Substance: SPIRONOLACTONE
  5. ONDANSETRON [Concomitant]
     Active Substance: ONDANSETRON
  6. CAPECITABINE. [Concomitant]
     Active Substance: CAPECITABINE
  7. TRASTUZUMAB. [Concomitant]
     Active Substance: TRASTUZUMAB
  8. POTASSIUM CHLORIDE. [Concomitant]
     Active Substance: POTASSIUM CHLORIDE
  9. GABAPENTIN. [Concomitant]
     Active Substance: GABAPENTIN
  10. LOMOTIL [Concomitant]
     Active Substance: ATROPINE SULFATE\DIPHENOXYLATE HYDROCHLORIDE
  11. APIXABAN [Concomitant]
     Active Substance: APIXABAN
  12. TUCATINIB [Suspect]
     Active Substance: TUCATINIB
     Dosage: 200 MG, BID

REACTIONS (7)
  - Presyncope [Recovered/Resolved]
  - Flatulence [Recovered/Resolved]
  - Sepsis [Unknown]
  - Product dose omission issue [Unknown]
  - Device related infection [Unknown]
  - Dehydration [Recovered/Resolved]
  - Hypokalaemia [Recovered/Resolved]

NARRATIVE: CASE EVENT DATE: 202012
